FAERS Safety Report 8123617-X (Version None)
Quarter: 2012Q1

REPORT INFORMATION
  Report Type: 
  Country: None (occurrence: None)
  Receive Date: 20120208
  Receipt Date: 20120203
  Transmission Date: 20120608
  Serious: Yes (Hospitalization)
  Sender: FDA-Public Use
  Company Number: PHHY2011CA111355

PATIENT
  Sex: Female

DRUGS (3)
  1. VITAMIN D [Concomitant]
  2. CALCIUM [Concomitant]
  3. ZOLEDRONOC ACID [Suspect]
     Indication: OSTEOPOROSIS
     Dosage: UNK
     Route: 042
     Dates: start: 20101201

REACTIONS (2)
  - BRAIN CONTUSION [None]
  - FALL [None]
